FAERS Safety Report 7119707-0 (Version None)
Quarter: 2010Q4

REPORT INFORMATION
  Report Type: 
  Country: None (occurrence: None)
  Receive Date: 20101115
  Receipt Date: 20101112
  Transmission Date: 20110411
  Serious: Yes (Hospitalization)
  Sender: FDA-Public Use
  Company Number: SP03205

PATIENT
  Age: 60 Year
  Sex: Female

DRUGS (5)
  1. VISICOL [Suspect]
     Indication: BOWEL PREPARATION
     Dosage: (50 GM),ORAL
     Route: 048
     Dates: start: 20101007, end: 20101007
  2. VISICOL [Suspect]
     Indication: COLONOSCOPY
     Dosage: (50 GM),ORAL
     Route: 048
     Dates: start: 20101007, end: 20101007
  3. OLMESARTAN MEDOXOMIL [Concomitant]
  4. AMLODIPINE BESYLATE [Concomitant]
  5. DIPYRIDAMOLE [Concomitant]

REACTIONS (8)
  - BLOOD PRESSURE DECREASED [None]
  - DEHYDRATION [None]
  - HYPERPHOSPHATAEMIA [None]
  - HYPOAESTHESIA [None]
  - HYPOCALCAEMIA [None]
  - MALAISE [None]
  - RENAL FAILURE ACUTE [None]
  - TETANY [None]
